FAERS Safety Report 6816848-X (Version None)
Quarter: 2010Q3

REPORT INFORMATION
  Report Type: 
  Country: None (occurrence: None)
  Receive Date: 20100706
  Receipt Date: 20100622
  Transmission Date: 20110219
  Serious: Yes (Other)
  Sender: FDA-Public Use
  Company Number: JP-SANOFI-AVENTIS-2010SA035912

PATIENT
  Age: 63 Year
  Sex: Male

DRUGS (5)
  1. ELPLAT [Suspect]
     Indication: RECTAL CANCER
     Route: 042
  2. BEVACIZUMAB [Suspect]
     Indication: RECTAL CANCER
     Route: 042
     Dates: start: 20080425, end: 20080425
  3. BEVACIZUMAB [Suspect]
     Route: 042
     Dates: start: 20080704, end: 20080704
  4. FLUOROURACIL [Suspect]
     Indication: RECTAL CANCER
     Route: 042
  5. CALCIUM LEVOFOLINATE [Suspect]
     Indication: RECTAL CANCER
     Route: 042

REACTIONS (1)
  - PULMONARY TUBERCULOSIS [None]
